FAERS Safety Report 16633563 (Version 1)
Quarter: 2019Q3

REPORT INFORMATION
  Report Type: Report from Study
  Country: GT (occurrence: GT)
  Receive Date: 20190725
  Receipt Date: 20190725
  Transmission Date: 20191004
  Serious: Yes (Death, Hospitalization)
  Sender: FDA-Public Use
  Company Number: GT-SA-2019SA200998

PATIENT
  Age: 53 Year
  Sex: Female

DRUGS (1)
  1. IRBESARTAN. [Suspect]
     Active Substance: IRBESARTAN
     Indication: HYPERTENSION
     Dosage: 1 DF, QD (24 HOURS)
     Route: 048
     Dates: start: 2018, end: 20190705

REACTIONS (6)
  - Dyspnoea [Fatal]
  - Pleural effusion [Fatal]
  - Fatigue [Fatal]
  - Fluid retention [Fatal]
  - Productive cough [Fatal]
  - Blood glucose increased [Fatal]

NARRATIVE: CASE EVENT DATE: 20190701
